FAERS Safety Report 21244098 (Version 1)
Quarter: 2022Q3

REPORT INFORMATION
  Report Type: Report from Study
  Country: DE (occurrence: DE)
  Receive Date: 20220823
  Receipt Date: 20220823
  Transmission Date: 20221027
  Serious: Yes (Hospitalization)
  Sender: FDA-Public Use
  Company Number: DE-MYLANLABS-2022M1082505

PATIENT
  Sex: Female

DRUGS (13)
  1. ENBREL [Suspect]
     Active Substance: ETANERCEPT
     Dosage: 50 MILLIGRAM
     Dates: start: 201510, end: 201703
  2. METHOTREXATE SODIUM [Suspect]
     Active Substance: METHOTREXATE SODIUM
     Dosage: 7.5 MILLIGRAM
     Dates: start: 20190430
  3. METHOTREXATE SODIUM [Suspect]
     Active Substance: METHOTREXATE SODIUM
     Dosage: 7.5 MILLIGRAM
     Dates: start: 20181030
  4. METHOTREXATE SODIUM [Suspect]
     Active Substance: METHOTREXATE SODIUM
     Dosage: 3.8 MILLIGRAM
     Dates: start: 20160404
  5. METHOTREXATE SODIUM [Suspect]
     Active Substance: METHOTREXATE SODIUM
     Dosage: 7.5 MILLIGRAM
     Dates: start: 20160104
  6. METHOTREXATE SODIUM [Suspect]
     Active Substance: METHOTREXATE SODIUM
     Dosage: 7.5 MILLIGRAM
     Dates: start: 20151005
  7. METHOTREXATE SODIUM [Suspect]
     Active Substance: METHOTREXATE SODIUM
     Dosage: 7.5 MILLIGRAM
     Dates: start: 20180417
  8. METHOTREXATE SODIUM [Suspect]
     Active Substance: METHOTREXATE SODIUM
     Dosage: 7.5 MILLIGRAM
     Dates: start: 20200401
  9. METHOTREXATE SODIUM [Suspect]
     Active Substance: METHOTREXATE SODIUM
     Dosage: 7.5 MILLIGRAM
     Dates: start: 20171102
  10. METHOTREXATE SODIUM [Suspect]
     Active Substance: METHOTREXATE SODIUM
     Dosage: 7.5 MILLIGRAM
     Dates: start: 20170403
  11. METHOTREXATE SODIUM [Suspect]
     Active Substance: METHOTREXATE SODIUM
     Dosage: 7.5 MILLIGRAM
     Dates: start: 20191002
  12. METHOTREXATE SODIUM [Suspect]
     Active Substance: METHOTREXATE SODIUM
     Dosage: 7.5 MILLIGRAM
     Dates: start: 20161010
  13. ETANERCEPT [Suspect]
     Active Substance: ETANERCEPT

REACTIONS (2)
  - Fall [Recovered/Resolved]
  - Periprosthetic fracture [Recovered/Resolved]

NARRATIVE: CASE EVENT DATE: 20190627
